FAERS Safety Report 7773379-0 (Version None)
Quarter: 2011Q3

REPORT INFORMATION
  Report Type: 
  Country: None (occurrence: None)
  Receive Date: 20110922
  Receipt Date: 20110914
  Transmission Date: 20111222
  Serious: Yes (Death, Hospitalization)
  Sender: FDA-Public Use
  Company Number: US-AMGEN-US328884

PATIENT
  Age: 50 Year
  Sex: Female

DRUGS (20)
  1. FOLIC ACID [Concomitant]
     Dosage: 1 MG, QD
     Route: 048
  2. LANSOPRAZOLE [Concomitant]
     Dosage: 30 MG, QD
     Route: 048
     Dates: start: 20020101
  3. REMICADE [Concomitant]
     Dosage: UNK UNK, UNK
     Route: 042
     Dates: start: 19980101, end: 20081118
  4. NPLATE [Suspect]
     Dosage: 250 MUG, UNK
     Dates: start: 20081219
  5. NPLATE [Suspect]
     Indication: IDIOPATHIC THROMBOCYTOPENIC PURPURA
     Dosage: 70 MUG, UNK
     Route: 058
     Dates: start: 20081104
  6. DEXAMETHASONE [Concomitant]
     Dosage: 4 MG, QD
     Route: 048
     Dates: start: 20080228, end: 20081212
  7. SODIUM CHLORIDE INJ [Concomitant]
  8. ENOXAPARIN [Concomitant]
     Dosage: 80 MG, BID
     Route: 058
     Dates: start: 20080101
  9. NPLATE [Suspect]
     Dosage: 140 MUG, UNK
     Dates: start: 20081125
  10. NPLATE [Suspect]
     Dosage: 500 MUG, UNK
     Dates: start: 20081223, end: 20081223
  11. MULTI-VITAMINS [Concomitant]
     Dosage: UNK UNK, UNK
     Route: 048
  12. GEMCITABINE HYDROCHLORIDE [Concomitant]
     Dosage: 651.4 MG/M2, UNK
     Route: 042
     Dates: start: 20080522, end: 20081212
  13. CARBOPLATIN [Concomitant]
     Dosage: 300 MG, UNK
     Route: 042
     Dates: start: 20080228, end: 20080819
  14. PROZAC [Concomitant]
     Dosage: 20 MG, QD
     Route: 048
     Dates: start: 20030101
  15. DIPHENHYDRAMINE HYDROCHLORIDE [Concomitant]
     Dosage: UNK UNK, UNK
     Route: 048
     Dates: start: 20080223
  16. ONDANSETRON HCL [Concomitant]
     Dosage: UNK UNK, UNK
     Route: 048
     Dates: start: 20080228, end: 20081212
  17. NPLATE [Suspect]
     Dosage: 200 MUG, UNK
     Dates: start: 20081202
  18. LORAZEPAM [Concomitant]
     Dosage: 1 MG, UNK
     Route: 048
  19. ACETAMINOPHEN AND HYDROCODONE BITARTRATE [Concomitant]
     Dosage: UNK UNK, UNK
     Route: 065
  20. SPIRONOLACTONE [Concomitant]
     Dosage: 25 MG, UNK
     Route: 065
     Dates: start: 20060101

REACTIONS (6)
  - PNEUMONIA [None]
  - TUMOUR EMBOLISM [None]
  - NEOPLASM MALIGNANT [None]
  - RENAL FAILURE [None]
  - THROMBOCYTOPENIA [None]
  - ANAEMIA [None]
